FAERS Safety Report 4973191-1 (Version None)
Quarter: 2006Q2

REPORT INFORMATION
  Report Type: 
  Country: None (occurrence: None)
  Receive Date: 20060414
  Receipt Date: 20051004
  Transmission Date: 20061013
  Serious: Yes (Hospitalization, Disabling)
  Sender: FDA-Public Use
  Company Number: US-MERCK-0510USA03887

PATIENT
  Age: 55 Year
  Sex: Female

DRUGS (1)
  1. VIOXX [Suspect]
     Route: 048

REACTIONS (17)
  - ANGIOPATHY [None]
  - ARTERIOVENOUS FISTULA OCCLUSION [None]
  - AZOTAEMIA [None]
  - BODY TEMPERATURE INCREASED [None]
  - CARDIOVASCULAR DISORDER [None]
  - CEREBROVASCULAR ACCIDENT [None]
  - EMBOLISM [None]
  - FALL [None]
  - HAEMATOMA [None]
  - HEADACHE [None]
  - INTERNAL INJURY [None]
  - MYOCARDIAL INFARCTION [None]
  - NERVOUS SYSTEM DISORDER [None]
  - RENAL FAILURE [None]
  - RENAL FAILURE CHRONIC [None]
  - RENAL IMPAIRMENT [None]
  - SYSTEMIC LUPUS ERYTHEMATOSUS [None]
